FAERS Safety Report 13261359 (Version 9)
Quarter: 2018Q1

REPORT INFORMATION
  Report Type: Spontaneous
  Country: US (occurrence: US)
  Receive Date: 20170222
  Receipt Date: 20180222
  Transmission Date: 20180508
  Serious: Yes (Other)
  Sender: FDA-Public Use
  Company Number: US-PFIZER INC-2017075459

PATIENT
  Age: 60 Year
  Sex: Female
  Weight: 104.31 kg

DRUGS (1)
  1. XELJANZ XR [Suspect]
     Active Substance: TOFACITINIB CITRATE
     Indication: RHEUMATOID ARTHRITIS
     Dosage: 11 MG, 1X/DAY
     Dates: start: 201701

REACTIONS (8)
  - Peripheral swelling [Unknown]
  - Sinusitis [Recovered/Resolved]
  - Tooth fracture [Recovered/Resolved]
  - Musculoskeletal disorder [Unknown]
  - Nasal dryness [Unknown]
  - Photosensitivity reaction [Not Recovered/Not Resolved]
  - Tooth infection [Recovered/Resolved]
  - Sjogren^s syndrome [Unknown]

NARRATIVE: CASE EVENT DATE: 201701
